FAERS Safety Report 6927496-5 (Version None)
Quarter: 2010Q3

REPORT INFORMATION
  Report Type: 
  Country: None (occurrence: None)
  Receive Date: 20100812
  Receipt Date: 20100803
  Transmission Date: 20110219
  Serious: Yes (Other)
  Sender: FDA-Public Use
  Company Number: 2010US003166

PATIENT

DRUGS (3)
  1. PROGRAF [Suspect]
     Indication: TRANSPLANT
  2. PHENYTOIN [Concomitant]
  3. ANTISEIZURE AGENTS [Concomitant]

REACTIONS (3)
  - CONDITION AGGRAVATED [None]
  - PARTIAL SEIZURES [None]
  - STATUS EPILEPTICUS [None]
